FAERS Safety Report 21301457 (Version 3)
Quarter: 2022Q4

REPORT INFORMATION
  Report Type: Report from Study
  Country: US (occurrence: None)
  Receive Date: 20220907
  Receipt Date: 20221207
  Transmission Date: 20230113
  Serious: Yes (Hospitalization, Other)
  Sender: FDA-Public Use
  Company Number: US-Merck Healthcare KGaA-9105682

PATIENT
  Age: 80 Year
  Sex: Female

DRUGS (4)
  1. REBIF [Suspect]
     Active Substance: INTERFERON BETA-1A
     Indication: Multiple sclerosis
     Dosage: PREFILLED SYRINGE
     Route: 058
     Dates: start: 20080325, end: 20181218
  2. REBIF [Suspect]
     Active Substance: INTERFERON BETA-1A
     Route: 058
     Dates: start: 20190214
  3. REBIF [Suspect]
     Active Substance: INTERFERON BETA-1A
     Route: 058
     Dates: start: 20211027
  4. REBIF [Suspect]
     Active Substance: INTERFERON BETA-1A
     Route: 058
     Dates: start: 20220701

REACTIONS (11)
  - Arterial occlusive disease [Recovering/Resolving]
  - Thrombosis [Unknown]
  - Pulmonary embolism [Recovered/Resolved]
  - Bronchitis [Recovered/Resolved]
  - Chronic kidney disease [Unknown]
  - Dyspnoea [Recovered/Resolved]
  - Mobility decreased [Unknown]
  - Blood pressure abnormal [Not Recovered/Not Resolved]
  - Sleep disorder [Recovering/Resolving]
  - Dizziness [Recovering/Resolving]
  - Tachycardia [Recovering/Resolving]

NARRATIVE: CASE EVENT DATE: 20190101
